FAERS Safety Report 9742229 (Version 2)
Quarter: 2013Q4

REPORT INFORMATION
  Report Type: Report from Study
  Country: US (occurrence: US)
  Receive Date: 20131210
  Receipt Date: 20131230
  Transmission Date: 20140711
  Serious: Yes (Hospitalization)
  Sender: FDA-Public Use
  Company Number: US-ASTELLAS-2013US012612

PATIENT
  Sex: Male
  Weight: 92 kg

DRUGS (13)
  1. ERLOTINIB TABLET [Suspect]
     Indication: RENAL CELL CARCINOMA
     Dosage: 150 MG, UID/QD
     Route: 048
     Dates: start: 20130822, end: 20131009
  2. TIVANTINIB [Suspect]
     Indication: RENAL CELL CARCINOMA
     Dosage: 240 MG, UNKNOWN/D
     Route: 048
     Dates: start: 20131009, end: 20131106
  3. TIVANTINIB [Suspect]
     Dosage: 360 MG, BID
     Route: 048
     Dates: start: 20130822, end: 20131007
  4. COREG [Concomitant]
     Indication: PRODUCT USED FOR UNKNOWN INDICATION
     Dosage: 25 MG, BID WITH MEALS
     Route: 048
  5. DURAGESIC                          /00174601/ [Concomitant]
     Indication: PRODUCT USED FOR UNKNOWN INDICATION
     Dosage: 50 50 MCG/HR, Q3D
  6. ARIXTRA [Concomitant]
     Indication: PRODUCT USED FOR UNKNOWN INDICATION
     Dosage: 7.5 MG/0.6 ML, UID/QD
     Route: 059
  7. DILAUDID [Concomitant]
     Indication: PAIN
     Dosage: 8 MG, Q3 HOURS AS NEEDED
     Route: 048
  8. APIDRA [Concomitant]
     Indication: PRODUCT USED FOR UNKNOWN INDICATION
     Dosage: 100 UNIT/ML, INJECT 10 UNITS INTO THE SKIN 3 TIMES DAILY BEFORE MEALS
     Route: 059
  9. SYNTHROID [Concomitant]
     Indication: PRODUCT USED FOR UNKNOWN INDICATION
     Dosage: 200 UG, UID/QD BEFORE BREAKFAST
     Route: 048
  10. PRILOSEC                           /00661201/ [Concomitant]
     Indication: PRODUCT USED FOR UNKNOWN INDICATION
     Dosage: 20 MG, UID/QD BEFORE BREAKFAST
     Route: 048
  11. CRESTOR [Concomitant]
     Indication: PRODUCT USED FOR UNKNOWN INDICATION
     Dosage: 10 MG, UID/QD
     Route: 048
  12. DRISDOL [Concomitant]
     Indication: PRODUCT USED FOR UNKNOWN INDICATION
     Dosage: 50000 U, UNKNOWN/D
     Route: 065
  13. VITAMIN D                          /00107901/ [Concomitant]
     Indication: PRODUCT USED FOR UNKNOWN INDICATION
     Dosage: UNK
     Route: 065

REACTIONS (3)
  - Off label use [Unknown]
  - Urinary retention [Recovered/Resolved]
  - Haematuria [Recovered/Resolved]
